FAERS Safety Report 17125893 (Version 1)
Quarter: 2019Q4

REPORT INFORMATION
  Report Type: Spontaneous
  Country: US (occurrence: US)
  Receive Date: 20191208
  Receipt Date: 20191208
  Transmission Date: 20200122
  Serious: Yes (Other)
  Sender: FDA-Public Use
  Company Number: US-AMGEN-USASP2019201020

PATIENT
  Age: 62 Year
  Sex: Female

DRUGS (2)
  1. SENNA [SENNA ALEXANDRINA LEAF] [Concomitant]
     Indication: ABDOMINAL DISCOMFORT
     Dosage: THREE TIMES A WEEK AND SOMETIMES FOUR TIMES A WEEK
  2. PROLIA [Suspect]
     Active Substance: DENOSUMAB
     Indication: OSTEOPOROSIS POSTMENOPAUSAL
     Dosage: 60 MILLIGRAM
     Route: 065
     Dates: start: 201806

REACTIONS (3)
  - Polyp [Unknown]
  - Incision site inflammation [Unknown]
  - Skin operation [Unknown]

NARRATIVE: CASE EVENT DATE: 2019
